FAERS Safety Report 12038709 (Version 1)
Quarter: 2016Q1

REPORT INFORMATION
  Report Type: Spontaneous
  Country: US (occurrence: None)
  Receive Date: 20160205
  Receipt Date: 20160205
  Transmission Date: 20160526
  Serious: Yes (Other)
  Sender: FDA-Public Use
  Company Number: None

PATIENT
  Age: 73 Year
  Sex: Male
  Weight: 68.22 kg

DRUGS (7)
  1. ONDANSETRON [Concomitant]
     Active Substance: ONDANSETRON
  2. HEPARIN [Concomitant]
     Active Substance: HEPARIN SODIUM
  3. RANITIDINE [Concomitant]
     Active Substance: RANITIDINE\RANITIDINE HYDROCHLORIDE
  4. PACLITAXEL 91 MG [Suspect]
     Active Substance: PACLITAXEL
     Indication: OESOPHAGEAL ADENOCARCINOMA
     Dosage: 91 MG IN 0.9% NS (50 MG/M2*1.81M2) CONTINUOUS INTRAVENOUS
     Route: 042
     Dates: start: 20150901, end: 20150901
  5. DIPHENHYDRAMINE. [Concomitant]
     Active Substance: DIPHENHYDRAMINE
  6. DEXAMETHASONE. [Concomitant]
     Active Substance: DEXAMETHASONE
  7. ASPIRIN. [Concomitant]
     Active Substance: ASPIRIN

REACTIONS (4)
  - Dyspnoea [None]
  - Chest pain [None]
  - Tremor [None]
  - Electrocardiogram abnormal [None]

NARRATIVE: CASE EVENT DATE: 20150901
